FAERS Safety Report 8254068-5 (Version None)
Quarter: 2012Q2

REPORT INFORMATION
  Report Type: 
  Country: None (occurrence: None)
  Receive Date: 20120402
  Receipt Date: 20120320
  Transmission Date: 20120825
  Serious: No
  Sender: FDA-Public Use
  Company Number: US-AMGEN-USASP2012017934

PATIENT
  Age: 75 Year
  Sex: Female

DRUGS (2)
  1. ENBREL [Suspect]
     Indication: RHEUMATOID ARTHRITIS
     Dosage: 50 MG, QWK
     Dates: start: 20060101, end: 20120310
  2. METHOTREXATE [Concomitant]
     Dosage: 1 MG, UNK

REACTIONS (3)
  - SINUS CONGESTION [None]
  - UPPER RESPIRATORY TRACT CONGESTION [None]
  - RHEUMATOID ARTHRITIS [None]
